FAERS Safety Report 14091700 (Version 1)
Quarter: 2017Q4

REPORT INFORMATION
  Report Type: Spontaneous
  Country: US (occurrence: US)
  Receive Date: 20171013
  Receipt Date: 20171013
  Transmission Date: 20180321
  Serious: Yes (Hospitalization)
  Sender: FDA-Public Use
  Company Number: None

PATIENT
  Age: 64 Year
  Sex: Female
  Weight: 76.05 kg

DRUGS (10)
  1. OMEGA 3-6-9 [Concomitant]
     Active Substance: FISH OIL
  2. MULTIVITAMINS [Concomitant]
     Active Substance: VITAMINS
  3. MAGNESIUM [Concomitant]
     Active Substance: MAGNESIUM
  4. SYNTHROID [Concomitant]
     Active Substance: LEVOTHYROXINE SODIUM
  5. VITAMIN D [Concomitant]
     Active Substance: CHOLECALCIFEROL
  6. LISINOPRIL. [Suspect]
     Active Substance: LISINOPRIL
     Indication: HYPERTENSION
     Dosage: ?          QUANTITY:90 TABLET(S);?
     Route: 048
     Dates: start: 20160213, end: 20171013
  7. CALCIUM [Concomitant]
     Active Substance: CALCIUM
  8. METOPROLOL TARTRATE. [Concomitant]
     Active Substance: METOPROLOL TARTRATE
  9. POTASSIUM [Concomitant]
     Active Substance: POTASSIUM
  10. HYDROCHLOROTHIAZIDE. [Concomitant]
     Active Substance: HYDROCHLOROTHIAZIDE

REACTIONS (10)
  - Drug ineffective [None]
  - Dizziness [None]
  - Nausea [None]
  - Blood pressure increased [None]
  - Diarrhoea [None]
  - Headache [None]
  - Burning sensation [None]
  - Paraesthesia [None]
  - Rash pruritic [None]
  - Abdominal discomfort [None]

NARRATIVE: CASE EVENT DATE: 20171006
